FAERS Safety Report 13162112 (Version 1)
Quarter: 2017Q1

REPORT INFORMATION
  Report Type: Spontaneous
  Country: US (occurrence: US)
  Receive Date: 20170126
  Receipt Date: 20170126
  Transmission Date: 20170428
  Serious: Yes (Death)
  Sender: FDA-Public Use
  Company Number: None

PATIENT
  Age: 65 Year
  Sex: Female

DRUGS (2)
  1. TACROLIMUS .5MG DR REDDY^S LAB [Suspect]
     Active Substance: TACROLIMUS
     Indication: RENAL TRANSPLANT
     Dosage: 2 IN THE MORNING 1 IN
     Route: 048
     Dates: start: 20111216, end: 20170124
  2. MYCOPHENOLATE 250MG ROXANE/WEST-WAR [Suspect]
     Active Substance: MYCOPHENOLIC ACID
     Indication: RENAL TRANSPLANT
     Route: 048
     Dates: start: 20111216, end: 20170124

REACTIONS (1)
  - Procedural complication [None]

NARRATIVE: CASE EVENT DATE: 20170124
